FAERS Safety Report 8406730-9 (Version None)
Quarter: 2012Q2

REPORT INFORMATION
  Report Type: 
  Country: None (occurrence: None)
  Receive Date: 20120604
  Receipt Date: 20120525
  Transmission Date: 20120825
  Serious: Yes (Hospitalization)
  Sender: FDA-Public Use
  Company Number: CN-ABBOTT-12P-035-0940377-00

PATIENT
  Age: 54 Year
  Sex: Female

DRUGS (3)
  1. DEPAKENE [Suspect]
     Indication: EPILEPSY
     Dosage: GASTRO-RESISTANT, TWICE A DAY
     Route: 048
     Dates: start: 20120520
  2. PHENOBARBITAL TAB [Suspect]
     Indication: EPILEPSY
     Route: 048
  3. SODIUM BROMIDE [Suspect]
     Indication: EPILEPSY
     Route: 048

REACTIONS (1)
  - STATUS EPILEPTICUS [None]
